FAERS Safety Report 13362422 (Version 4)
Quarter: 2020Q1

REPORT INFORMATION
  Report Type: Report from Study
  Country: BR (occurrence: CO)
  Receive Date: 20170323
  Receipt Date: 20200108
  Transmission Date: 20200409
  Serious: Yes (Hospitalization, Other)
  Sender: FDA-Public Use
  Company Number: CO-ASTELLAS-2017US011138

PATIENT
  Age: 56 Year
  Sex: Female
  Weight: 61 kg

DRUGS (2)
  1. TACROLIMUS. [Suspect]
     Active Substance: TACROLIMUS
     Indication: RENAL TRANSPLANT
     Dosage: 11 MG, ONCE DAILY (2 CAPSULES OF TACROLIMUS 5 MG AND 1 CAPSULE OF TACROLIMUS 1 MG)
     Route: 048
     Dates: start: 20120102, end: 20170311
  2. TACROLIMUS. [Suspect]
     Active Substance: TACROLIMUS
     Route: 048
     Dates: start: 20170312, end: 20170319

REACTIONS (8)
  - Kidney transplant rejection [Recovering/Resolving]
  - Muscle spasms [Unknown]
  - Pain [Unknown]
  - Product use issue [Unknown]
  - Fluid retention [Recovering/Resolving]
  - Peripheral swelling [Recovering/Resolving]
  - Vomiting [Unknown]
  - Off label use [Unknown]

NARRATIVE: CASE EVENT DATE: 201703
